FAERS Safety Report 23689152 (Version 2)
Quarter: 2025Q2

REPORT INFORMATION
  Report Type: Spontaneous
  Country: US (occurrence: US)
  Receive Date: 20240330
  Receipt Date: 20250419
  Transmission Date: 20250716
  Serious: Yes (Other)
  Sender: AUROBINDO
  Company Number: US-MLMSERVICE-20240312-4869716-1

PATIENT
  Age: 4 Year
  Sex: Female

DRUGS (6)
  1. DEXAMETHASONE [Suspect]
     Active Substance: DEXAMETHASONE
     Indication: B-cell type acute leukaemia
     Route: 065
  2. DEXAMETHASONE [Suspect]
     Active Substance: DEXAMETHASONE
     Indication: Metastases to kidney
  3. ASPARAGINASE [Suspect]
     Active Substance: ASPARAGINASE
     Indication: Metastases to kidney
     Route: 065
  4. ASPARAGINASE [Suspect]
     Active Substance: ASPARAGINASE
     Indication: B-cell type acute leukaemia
  5. VINCRISTINE [Suspect]
     Active Substance: VINCRISTINE
     Indication: Metastases to kidney
     Route: 065
  6. VINCRISTINE [Suspect]
     Active Substance: VINCRISTINE
     Indication: B-cell type acute leukaemia

REACTIONS (1)
  - Guillain-Barre syndrome [Recovering/Resolving]
